FAERS Safety Report 11653094 (Version 3)
Quarter: 2015Q4

REPORT INFORMATION
  Report Type: Spontaneous
  Country: TR (occurrence: TR)
  Receive Date: 20151022
  Receipt Date: 20151026
  Transmission Date: 20160304
  Serious: Yes (Death, Life-Threatening, Other)
  Sender: FDA-Public Use
  Company Number: TR-FRESENIUS KABI-FK201505038

PATIENT
  Age: 74 Year
  Sex: Male
  Weight: 85 kg

DRUGS (6)
  1. HEPARIN (MANUFACTURER UNKNOWN) [Suspect]
     Active Substance: HEPARIN SODIUM
     Indication: CARDIOPULMONARY BYPASS
     Route: 065
  2. HEPARIN (MANUFACTURER UNKNOWN) [Suspect]
     Active Substance: HEPARIN SODIUM
     Indication: CARDIOPULMONARY BYPASS
     Route: 065
  3. HEPARIN (MANUFACTURER UNKNOWN) [Suspect]
     Active Substance: HEPARIN SODIUM
     Indication: ANTICOAGULANT THERAPY
     Route: 065
  4. HEPARIN (MANUFACTURER UNKNOWN) [Suspect]
     Active Substance: HEPARIN SODIUM
     Indication: CATHETERISATION CARDIAC
     Route: 042
  5. HEPARIN (MANUFACTURER UNKNOWN) [Suspect]
     Active Substance: HEPARIN SODIUM
     Indication: ANTICOAGULANT THERAPY
     Route: 065
  6. HEPARIN (MANUFACTURER UNKNOWN) [Suspect]
     Active Substance: HEPARIN SODIUM
     Indication: COAGULATION TIME
     Route: 065

REACTIONS (7)
  - Multi-organ failure [Fatal]
  - Arterial thrombosis [Not Recovered/Not Resolved]
  - Heparin-induced thrombocytopenia [Not Recovered/Not Resolved]
  - Ventricle rupture [Recovering/Resolving]
  - Ischaemia [Not Recovered/Not Resolved]
  - Acute kidney injury [Unknown]
  - Thrombophlebitis superficial [Not Recovered/Not Resolved]
